FAERS Safety Report 7980630-0 (Version None)
Quarter: 2011Q4

REPORT INFORMATION
  Report Type: 
  Country: None (occurrence: None)
  Receive Date: 20111214
  Receipt Date: 20111130
  Transmission Date: 20120403
  Serious: Yes (Life-Threatening)
  Sender: FDA-Public Use
  Company Number: DE-ARROW GEN-2011-20660

PATIENT
  Sex: Male
  Weight: 110 kg

DRUGS (4)
  1. FLUVASTATIN SODIUM [Suspect]
     Indication: LIPID METABOLISM DISORDER
     Dosage: 20 MG, UNK
     Route: 048
     Dates: start: 20101015, end: 20101103
  2. PRAVASTATIN SODIUM [Suspect]
     Indication: LIPID METABOLISM DISORDER
     Dosage: UNK
     Route: 048
     Dates: start: 20101006, end: 20101008
  3. EZETIMIBE [Suspect]
     Indication: LIPID METABOLISM DISORDER
     Dosage: 10 MG, UNK
     Route: 048
     Dates: start: 20110120, end: 20110908
  4. SIMVASTATIN [Suspect]
     Indication: LIPID METABOLISM DISORDER
     Dosage: 20 MG, UNK
     Route: 048
     Dates: start: 20100821, end: 20101015

REACTIONS (6)
  - ABASIA [None]
  - RENAL FAILURE ACUTE [None]
  - MYALGIA [None]
  - MYOGLOBIN URINE [None]
  - BLOOD CREATINE PHOSPHOKINASE INCREASED [None]
  - RHABDOMYOLYSIS [None]
